FAERS Safety Report 25682167 (Version 1)
Quarter: 2025Q3

REPORT INFORMATION
  Report Type: Spontaneous
  Country: US (occurrence: US)
  Receive Date: 20250814
  Receipt Date: 20250814
  Transmission Date: 20251021
  Serious: Yes (Other)
  Sender: SANOFI AVENTIS
  Company Number: US-SA-2025SA237846

PATIENT
  Age: 33 Year
  Sex: Male

DRUGS (1)
  1. LANTUS SOLOSTAR [Suspect]
     Active Substance: INSULIN GLARGINE
     Indication: Blood glucose increased
     Dosage: UNK, QD
     Route: 058

REACTIONS (9)
  - Impaired gastric emptying [Unknown]
  - Neuropathy peripheral [Unknown]
  - Type 1 diabetes mellitus [Not Recovered/Not Resolved]
  - Condition aggravated [Not Recovered/Not Resolved]
  - Retinopathy [Unknown]
  - Limb discomfort [Unknown]
  - Arthropathy [Unknown]
  - Abdominal discomfort [Unknown]
  - Eye haemorrhage [Unknown]
